FAERS Safety Report 4372815-X (Version None)
Quarter: 2004Q2

REPORT INFORMATION
  Report Type: 
  Country: None (occurrence: None)
  Receive Date: 20040602
  Receipt Date: 20040423
  Transmission Date: 20050107
  Serious: No
  Sender: FDA-Public Use
  Company Number: 200417719BWH

PATIENT
  Age: 70 Year
  Sex: Male

DRUGS (7)
  1. LEVITRA [Suspect]
     Indication: ERECTILE DYSFUNCTION
     Dosage: 10 MG, TOTAL DAILY, ORAL : 10 MG TOTAL DAILY, ORAL : 20 MG, ORAL
     Route: 048
     Dates: start: 20040418
  2. LEVITRA [Suspect]
     Indication: ERECTILE DYSFUNCTION
     Dosage: 10 MG, TOTAL DAILY, ORAL : 10 MG TOTAL DAILY, ORAL : 20 MG, ORAL
     Route: 048
     Dates: start: 20040418
  3. LEVITRA [Suspect]
     Indication: ERECTILE DYSFUNCTION
     Dosage: 10 MG, TOTAL DAILY, ORAL : 10 MG TOTAL DAILY, ORAL : 20 MG, ORAL
     Route: 048
     Dates: start: 20040419
  4. GLUCOPHAGE [Concomitant]
  5. MYSOLINE [Concomitant]
  6. HYDROXYLINE [Concomitant]
  7. VIAGRA [Concomitant]

REACTIONS (1)
  - ERECTILE DYSFUNCTION [None]
